FAERS Safety Report 19980730 (Version 1)
Quarter: 2021Q4

REPORT INFORMATION
  Report Type: Spontaneous
  Country: JP (occurrence: JP)
  Receive Date: 20211021
  Receipt Date: 20211021
  Transmission Date: 20220303
  Serious: Yes (Other)
  Sender: FDA-Public Use
  Company Number: JP-TEVA-2021-JP-1967738

PATIENT
  Sex: Female

DRUGS (1)
  1. TRISENOX [Suspect]
     Active Substance: ARSENIC TRIOXIDE
     Route: 042

REACTIONS (1)
  - Meningitis [Unknown]
